FAERS Safety Report 10649983 (Version 5)
Quarter: 2016Q1

REPORT INFORMATION
  Report Type: Spontaneous
  Country: US (occurrence: US)
  Receive Date: 20141212
  Receipt Date: 20160219
  Transmission Date: 20160525
  Serious: Yes (Other)
  Sender: FDA-Public Use
  Company Number: US-PFIZER INC-2014340577

PATIENT
  Age: 44 Year
  Sex: Female
  Weight: 53 kg

DRUGS (2)
  1. HYDRO 10 [Concomitant]
     Indication: BACK PAIN
     Dosage: UNK
     Dates: start: 201404
  2. LYRICA [Suspect]
     Active Substance: PREGABALIN
     Indication: NEURALGIA
     Dosage: 75 MG, 1 CAPSULE TWICE A DAY
     Route: 048
     Dates: start: 201404

REACTIONS (3)
  - Bladder prolapse [Recovering/Resolving]
  - Drug prescribing error [Unknown]
  - Drug ineffective [Not Recovered/Not Resolved]
